FAERS Safety Report 8778584 (Version 1)
Quarter: 2012Q4

REPORT INFORMATION
  Report Type: 
  Country: SE (occurrence: SE)
  Receive Date: 20120912
  Receipt Date: 20120912
  Transmission Date: 20130627
  Serious: Yes (Hospitalization)
  Sender: FDA-Public Use
  Company Number: PHHY2012SE078734

PATIENT
  Age: 58 Year
  Sex: Male

DRUGS (4)
  1. GABAPENTIN [Suspect]
     Dosage: 3600 mg
     Route: 048
     Dates: start: 20081113, end: 20120507
  2. TRAMADOL [Suspect]
     Indication: PAIN
     Route: 048
  3. PALEXIA [Suspect]
     Indication: PAIN
     Dosage: 450 mg
     Route: 048
     Dates: start: 20120110, end: 20120502
  4. POSTAFEN [Concomitant]

REACTIONS (11)
  - Serotonin syndrome [Recovered/Resolved with Sequelae]
  - Disorientation [Recovered/Resolved with Sequelae]
  - Restlessness [Recovered/Resolved with Sequelae]
  - Dyspnoea [Recovered/Resolved with Sequelae]
  - Fatigue [Recovered/Resolved with Sequelae]
  - Tachycardia [Recovered/Resolved with Sequelae]
  - Alkalosis [Recovered/Resolved with Sequelae]
  - Muscle spasms [Recovered/Resolved with Sequelae]
  - Diarrhoea [Recovered/Resolved with Sequelae]
  - Hyperventilation [None]
  - Brain oedema [None]
